FAERS Safety Report 6128934-0 (Version None)
Quarter: 2009Q1

REPORT INFORMATION
  Report Type: 
  Country: None (occurrence: None)
  Receive Date: 20090324
  Receipt Date: 20090311
  Transmission Date: 20090719
  Serious: Yes (Other)
  Sender: FDA-Public Use
  Company Number: PHHY2009DE05643

PATIENT
  Sex: Male
  Weight: 85 kg

DRUGS (12)
  1. SANDIMMUNE [Suspect]
     Indication: PYODERMA GANGRENOSUM
     Dosage: 350 MG/DAY
     Route: 048
     Dates: start: 20090127, end: 20090209
  2. DIURETICS [Suspect]
     Dosage: UNK
  3. DILTIAZEM [Concomitant]
     Dosage: UNK
  4. PREDNISOLONE [Concomitant]
     Indication: PYODERMA GANGRENOSUM
     Dosage: 75 MG/D (100 MG/D TO 10 MG/D)
     Route: 048
     Dates: start: 20090127, end: 20090223
  5. PANTOZOL [Concomitant]
     Indication: PROPHYLAXIS
     Dosage: 20 MG/D
     Route: 048
     Dates: start: 20090127
  6. ASPIRIN [Concomitant]
     Dosage: 100 MG/D
     Route: 048
  7. BELOC-ZOK COMP [Concomitant]
     Indication: HYPERTENSION
     Dosage: 9.5 MG/D/12.5 MG/D (HCTZ)
     Route: 048
  8. DIOVAN [Concomitant]
     Indication: HYPERTENSION
     Dosage: 160 MG/D
     Route: 048
  9. DELIX [Concomitant]
     Indication: HYPERTENSION
     Dosage: 10 MG/D
     Route: 048
  10. TORASEMIDE [Concomitant]
     Indication: HYPERTENSION
     Dosage: 10 MG/D
     Route: 048
     Dates: end: 20090129
  11. AMLODIN [Concomitant]
     Dosage: 5 MG/D
  12. FENTANYL-25 [Concomitant]
     Dosage: 12.5 UG/D

REACTIONS (2)
  - BLOOD POTASSIUM DECREASED [None]
  - RENAL FAILURE ACUTE [None]
